FAERS Safety Report 18077175 (Version 1)
Quarter: 2020Q3

REPORT INFORMATION
  Report Type: Spontaneous
  Country: US (occurrence: US)
  Receive Date: 20200727
  Receipt Date: 20200727
  Transmission Date: 20201103
  Serious: No
  Sender: FDA-Public Use
  Company Number: US-ABBVIE-20K-163-3404329-00

PATIENT
  Age: 37 Year
  Sex: Female

DRUGS (1)
  1. MAVYRET [Suspect]
     Active Substance: GLECAPREVIR\PIBRENTASVIR
     Indication: HEPATITIS C
     Route: 048
     Dates: start: 202003, end: 2020

REACTIONS (5)
  - Vaginal haemorrhage [Recovered/Resolved]
  - Crying [Recovered/Resolved]
  - Muscle spasms [Recovered/Resolved]
  - Premenstrual syndrome [Recovered/Resolved]
  - Amenorrhoea [Not Recovered/Not Resolved]

NARRATIVE: CASE EVENT DATE: 202005
